FAERS Safety Report 7013596-0 (Version None)
Quarter: 2010Q3

REPORT INFORMATION
  Report Type: 
  Country: None (occurrence: None)
  Receive Date: 20100924
  Receipt Date: 20100915
  Transmission Date: 20110219
  Serious: Yes (Hospitalization)
  Sender: FDA-Public Use
  Company Number: GXKR2010KR10510

PATIENT
  Age: 53 Year
  Sex: Male

DRUGS (2)
  1. FLUCONAZOLE [Suspect]
     Dosage: FOR 1 WEEK
     Route: 065
  2. ANTICOAGULANTS [Interacting]
     Route: 065

REACTIONS (6)
  - COAGULOPATHY [None]
  - DRUG INTERACTION [None]
  - EPISTAXIS [None]
  - HAEMATOMA EVACUATION [None]
  - HAEMATURIA [None]
  - PERITONEAL HAEMORRHAGE [None]
